FAERS Safety Report 20776975 (Version 1)
Quarter: 2022Q2

REPORT INFORMATION
  Report Type: Other
  Country: DE (occurrence: None)
  Receive Date: 20220502
  Receipt Date: 20220502
  Transmission Date: 20220721
  Serious: No
  Sender: FDA-Public Use
  Company Number: DE-ROCHE-3087363

PATIENT
  Age: 30 Year
  Sex: Male
  Weight: 92 kg

DRUGS (10)
  1. OCRELIZUMAB [Suspect]
     Active Substance: OCRELIZUMAB
     Indication: Relapsing multiple sclerosis
     Route: 042
     Dates: start: 20191001
  2. OCRELIZUMAB [Suspect]
     Active Substance: OCRELIZUMAB
     Route: 042
     Dates: start: 20190307, end: 20190321
  3. COMIRNATY [Concomitant]
     Active Substance: TOZINAMERAN
     Indication: COVID-19 prophylaxis
     Route: 030
     Dates: start: 20210306, end: 20210328
  4. METHYPRED [Concomitant]
     Indication: Premedication
     Route: 042
     Dates: start: 20191001
  5. METHYPRED [Concomitant]
     Route: 042
     Dates: start: 20190307, end: 20190321
  6. LYRICA [Concomitant]
     Active Substance: PREGABALIN
     Indication: Muscle spasms
     Route: 048
     Dates: start: 20121218
  7. DIMETHINDENE MALEATE [Concomitant]
     Active Substance: DIMETHINDENE MALEATE
     Indication: Premedication
     Route: 042
     Dates: start: 20190307, end: 20190321
  8. DIMETHINDENE MALEATE [Concomitant]
     Active Substance: DIMETHINDENE MALEATE
     Route: 042
     Dates: start: 20191001
  9. LINOLA [Concomitant]
     Indication: Alopecia scarring
     Dosage: DEFINITION OF THE INTERVAL: AS REQUIRED?EXACT NAME UNKNOWN
     Route: 061
     Dates: start: 20220402
  10. CHOLECALCIFEROL [Concomitant]
     Active Substance: CHOLECALCIFEROL
     Indication: Vitamin D deficiency
     Route: 048
     Dates: start: 20140211

REACTIONS (1)
  - COVID-19 [Recovered/Resolved]

NARRATIVE: CASE EVENT DATE: 20220124
